FAERS Safety Report 6524223-0 (Version None)
Quarter: 2009Q4

REPORT INFORMATION
  Report Type: 
  Country: None (occurrence: None)
  Receive Date: 20091231
  Receipt Date: 20091218
  Transmission Date: 20100525
  Serious: Yes (Other)
  Sender: FDA-Public Use
  Company Number: JP-GENENTECH-288205

PATIENT
  Age: 43 Year
  Sex: Female

DRUGS (5)
  1. LUCENTIS [Suspect]
     Indication: MYOPIA
     Dosage: 0.05 ML, UNK
     Route: 031
     Dates: start: 20090702
  2. LUCENTIS [Suspect]
     Dosage: 0.05 ML, UNK
     Route: 031
     Dates: start: 20090730
  3. LUCENTIS [Suspect]
     Dosage: 0.05 ML, UNK
     Route: 031
     Dates: start: 20090827
  4. LUCENTIS [Suspect]
     Dosage: 0.05 ML, UNK
     Route: 031
     Dates: start: 20090925
  5. LEVOFLOXACIN [Concomitant]
     Indication: DRUG USE FOR UNKNOWN INDICATION
     Dosage: UNK
     Dates: start: 20090701, end: 20090901

REACTIONS (2)
  - RETINAL HAEMORRHAGE [None]
  - RETINAL TEAR [None]
